FAERS Safety Report 24808537 (Version 1)
Quarter: 2025Q1

REPORT INFORMATION
  Report Type: Spontaneous
  Country: US (occurrence: US)
  Receive Date: 20250106
  Receipt Date: 20250106
  Transmission Date: 20250408
  Serious: Yes (Hospitalization)
  Sender: AUROBINDO
  Company Number: US-AUROBINDO-AUR-APL-2024-062677

PATIENT
  Age: 6 Year
  Sex: Male
  Weight: 19.6 kg

DRUGS (1)
  1. VIGABATRIN [Suspect]
     Active Substance: VIGABATRIN
     Indication: Infantile spasms
     Dates: start: 201909

REACTIONS (2)
  - Dyspnoea [Unknown]
  - Pneumonia [Unknown]
